FAERS Safety Report 9169348 (Version 1)
Quarter: 2013Q1

REPORT INFORMATION
  Report Type: Spontaneous
  Country: FR (occurrence: FR)
  Receive Date: 20130318
  Receipt Date: 20130318
  Transmission Date: 20140127
  Serious: Yes (Other)
  Sender: FDA-Public Use
  Company Number: FR-ROCHE-1203001

PATIENT
  Age: 64 Year
  Sex: Female

DRUGS (3)
  1. LUCENTIS [Suspect]
     Indication: AGE-RELATED MACULAR DEGENERATION
     Route: 050
     Dates: start: 20081001, end: 20081001
  2. DAFLON (FRANCE) [Concomitant]
  3. COLCHIMAX [Concomitant]

REACTIONS (1)
  - Angina pectoris [Recovered/Resolved]
